FAERS Safety Report 6427457-9 (Version None)
Quarter: 2009Q4

REPORT INFORMATION
  Report Type: 
  Country: None (occurrence: None)
  Receive Date: 20091104
  Receipt Date: 20091028
  Transmission Date: 20100525
  Serious: Yes (Other)
  Sender: FDA-Public Use
  Company Number: HR-WYE-H11977809

PATIENT
  Age: 78 Year
  Sex: Female

DRUGS (9)
  1. CORDARONE [Suspect]
     Indication: ATRIAL FIBRILLATION
     Route: 048
  2. CONTROLOC [Concomitant]
     Dosage: DOSE UNKNOWN
     Route: 048
  3. CIPRALEX [Concomitant]
     Dosage: DOSE UNKNOWN
     Route: 048
  4. POTASSIUM CHLORIDE [Concomitant]
     Dosage: DOSE UNKNOWN
     Route: 065
  5. NOVOMIX [Concomitant]
     Dosage: DOSE UNKNOWN
     Route: 058
  6. ACETYLSALICYLIC ACID [Concomitant]
     Dosage: DOSE UNKNOWN
     Route: 048
  7. DECORTIN [Suspect]
     Indication: THROMBOCYTOPENIA
     Route: 048
  8. DECORTIN [Suspect]
     Indication: MEGAKARYOCYTES DECREASED
  9. FUROSEMIDE [Concomitant]
     Route: 048

REACTIONS (4)
  - DERMATITIS BULLOUS [None]
  - ERYTHEMA [None]
  - HYPERTHYROIDISM [None]
  - OEDEMA PERIPHERAL [None]
